FAERS Safety Report 17685120 (Version 2)
Quarter: 2020Q2

REPORT INFORMATION
  Report Type: Report from Study
  Country: IT (occurrence: IT)
  Receive Date: 20200420
  Receipt Date: 20200501
  Transmission Date: 20200714
  Serious: Yes (Hospitalization)
  Sender: FDA-Public Use
  Company Number: IT-TEVA-2020-IT-1226339

PATIENT
  Age: 80 Year
  Sex: Male

DRUGS (6)
  1. AVODART [Suspect]
     Active Substance: DUTASTERIDE
     Indication: BENIGN PROSTATIC HYPERPLASIA
     Dosage: 1 DOSAGE FORMS
     Route: 048
     Dates: start: 20190426, end: 20190430
  2. SALMETEDUR 25 MCG/EROGAZIONE SOSPENSIONE PRESSURIZZATA PER INALAZIONE [Concomitant]
     Route: 055
  3. TOTALIP 20 MG COMPRESSE RIVESTITE CON FILM [Concomitant]
     Route: 048
  4. TAMSULOSIN TEVA 0,4MG CAPSULE RIGIDE A RILASCIO MODIFICATO [Suspect]
     Active Substance: TAMSULOSIN HYDROCHLORIDE
     Indication: BENIGN PROSTATIC HYPERPLASIA
     Dosage: 1 DOSAGE FORMS
     Route: 048
     Dates: start: 20190426, end: 20190430
  5. RAMIPRIL RATIOPHARM 2,5 MG COMPRESSE [Concomitant]
     Route: 048
  6. FLIXOTIDE 500 MCG POLVERE PER INALAZIONE [Concomitant]
     Route: 055

REACTIONS (1)
  - Face oedema [Recovered/Resolved]

NARRATIVE: CASE EVENT DATE: 20190430
